FAERS Safety Report 9295543 (Version 1)
Quarter: 2013Q2

REPORT INFORMATION
  Report Type: Spontaneous
  Country: DK (occurrence: DK)
  Receive Date: 20130517
  Receipt Date: 20130517
  Transmission Date: 20140414
  Serious: Yes (Hospitalization)
  Sender: FDA-Public Use
  Company Number: DK-JNJFOC-20130504041

PATIENT
  Age: 61 Year
  Sex: Male
  Weight: 81 kg

DRUGS (7)
  1. DOXORUBICIN HYDROCHLORIDE [Suspect]
     Indication: DIFFUSE LARGE B-CELL LYMPHOMA
     Dosage: 100 (UNITS UNSPECIFIED)
     Route: 042
     Dates: start: 20101217
  2. RITUXIMAB [Suspect]
     Indication: DIFFUSE LARGE B-CELL LYMPHOMA
     Dosage: 750.0 (UNITS UNSPECIFIED); START PERIOD- 17 DAYS
     Route: 042
     Dates: start: 20101217
  3. VINCRISTINE [Suspect]
     Indication: DIFFUSE LARGE B-CELL LYMPHOMA
     Dosage: 2.0 (UNITS UNSPECIFIED)
     Route: 065
     Dates: start: 20101217
  4. PEGFILGRASTIM [Suspect]
     Indication: DIFFUSE LARGE B-CELL LYMPHOMA
     Dosage: 6.0 (UNITS UNSPECIFIED)
     Route: 058
     Dates: start: 20101220
  5. CYCLOPHOSPHAMIDE [Suspect]
     Indication: DIFFUSE LARGE B-CELL LYMPHOMA
     Dosage: 1650.0 (UNITS UNSPECIFIED)
     Route: 042
     Dates: start: 20101217
  6. PREDNISONE [Suspect]
     Indication: DIFFUSE LARGE B-CELL LYMPHOMA
     Dosage: 100 (UNIT UNSPECIFIED)
     Route: 048
     Dates: start: 20101217
  7. PANTOLOC [Concomitant]
     Indication: PROPHYLAXIS
     Route: 048
     Dates: start: 20101203, end: 20110102

REACTIONS (5)
  - Malabsorption [Recovered/Resolved with Sequelae]
  - Diarrhoea [Recovering/Resolving]
  - Dehydration [Unknown]
  - Ascites [Unknown]
  - Weight decreased [Recovering/Resolving]
